FAERS Safety Report 7364420-8 (Version None)
Quarter: 2011Q1

REPORT INFORMATION
  Report Type: 
  Country: None (occurrence: None)
  Receive Date: 20110321
  Receipt Date: 20110301
  Transmission Date: 20110831
  Serious: Yes (Other)
  Sender: FDA-Public Use
  Company Number: US-BAYER-200912887NA

PATIENT
  Sex: Male
  Weight: 76.327 kg

DRUGS (24)
  1. BENAZEPRIL [Concomitant]
     Dosage: 20 MG, QD
     Route: 048
     Dates: start: 20060101
  2. PROPOFOL [Concomitant]
     Dosage: UNK
     Route: 042
     Dates: start: 20061107, end: 20061107
  3. HEPARIN SODIUM [Concomitant]
     Dosage: UNK
     Route: 042
     Dates: start: 20061107, end: 20061107
  4. LASIX [Concomitant]
     Dosage: UNK
     Route: 042
     Dates: start: 20061107, end: 20061107
  5. TOPROL-XL [Concomitant]
  6. AMLODIPINE [Concomitant]
  7. FENTANYL [Concomitant]
     Dosage: UNK
     Route: 042
     Dates: start: 20061107, end: 20061107
  8. INSULIN [Concomitant]
     Dosage: UNK
     Route: 042
     Dates: start: 20061107, end: 20061107
  9. ZOCOR [Concomitant]
     Dosage: 20 MG, QD
     Route: 048
     Dates: start: 20060101
  10. VERSED [Concomitant]
     Dosage: UNK
     Route: 042
     Dates: start: 20061107, end: 20061107
  11. EPINEPHRINE [Concomitant]
     Dosage: UNK
     Dates: start: 20061107, end: 20061107
  12. CEFAZOLIN [Concomitant]
     Dosage: UNK
     Route: 042
     Dates: start: 20061107, end: 20061107
  13. SIMVASTATIN [Concomitant]
  14. TRASYLOL [Suspect]
     Indication: AORTIC ANEURYSM REPAIR
     Dosage: 2 MG, Q1HR
     Route: 042
     Dates: start: 20061107, end: 20061107
  15. METOPROLOL SUCCINATE [Concomitant]
     Dosage: 50 MG, QD
     Route: 048
     Dates: start: 20061101
  16. PROTAMINE SULFATE [Concomitant]
     Dosage: UNK
     Route: 042
     Dates: start: 20061107, end: 20061107
  17. FUROSEMIDE [Concomitant]
     Dosage: 40 MG, QD
     Route: 048
     Dates: start: 20060101
  18. TRASYLOL [Suspect]
     Indication: AORTIC VALVE REPLACEMENT
  19. NORVASC [Concomitant]
     Dosage: 5 MG, QD
     Route: 048
     Dates: start: 20000101
  20. ASPIRIN [Concomitant]
     Dosage: UNK
     Dates: start: 20060101
  21. NORTRIPTYLINE [Concomitant]
     Dosage: 25 MG, HS
     Route: 048
     Dates: start: 20061101
  22. ALDACTONE [Concomitant]
     Dosage: 25 MG, QD
     Route: 048
     Dates: start: 20061101
  23. CALCIUM [Concomitant]
     Dosage: 1000 MG, UNK
     Route: 042
     Dates: start: 20061107, end: 20061107
  24. LISINOPRIL [Concomitant]

REACTIONS (5)
  - RENAL FAILURE ACUTE [None]
  - RENAL FAILURE [None]
  - PAIN [None]
  - UNEVALUABLE EVENT [None]
  - INJURY [None]
